FAERS Safety Report 24623180 (Version 2)
Quarter: 2025Q4

REPORT INFORMATION
  Report Type: Report from Study
  Country: JP (occurrence: None)
  Receive Date: 20241115
  Receipt Date: 20251203
  Transmission Date: 20260117
  Serious: Yes (Other)
  Sender: UCB
  Company Number: JP-UCBSA-2024058966

PATIENT

DRUGS (2)
  1. BIMEKIZUMAB [Suspect]
     Active Substance: BIMEKIZUMAB
     Indication: Psoriasis
     Dosage: 320 MILLIGRAM, EV 4 WEEKS
  2. BIMEKIZUMAB [Suspect]
     Active Substance: BIMEKIZUMAB
     Dosage: 320 MILLIGRAM, EV 8 WEEKS

REACTIONS (14)
  - Psoriatic arthropathy [Recovering/Resolving]
  - Oral candidiasis [Recovered/Resolved]
  - Cellulitis [Recovering/Resolving]
  - Blepharitis [Recovering/Resolving]
  - Dyshidrotic eczema [Recovering/Resolving]
  - Pruritus [Recovering/Resolving]
  - Fatigue [Recovering/Resolving]
  - Liver disorder [Recovering/Resolving]
  - Acne [Recovering/Resolving]
  - Body tinea [Recovering/Resolving]
  - Headache [Recovering/Resolving]
  - Tinea pedis [Recovering/Resolving]
  - Pilonidal disease [Recovering/Resolving]
  - Dermatitis atopic [Recovering/Resolving]
